FAERS Safety Report 6308098-0 (Version None)
Quarter: 2009Q3

REPORT INFORMATION
  Report Type: 
  Country: None (occurrence: None)
  Receive Date: 20090813
  Receipt Date: 20090805
  Transmission Date: 20100115
  Serious: Yes (Other)
  Sender: FDA-Public Use
  Company Number: US-AMGEN-QUU358855

PATIENT
  Sex: Female

DRUGS (2)
  1. ENBREL [Suspect]
     Indication: RHEUMATOID ARTHRITIS
     Route: 058
     Dates: start: 20090624
  2. METHOTREXATE [Concomitant]
     Route: 048

REACTIONS (12)
  - DRUG EFFECT DECREASED [None]
  - EYE SWELLING [None]
  - FEELING ABNORMAL [None]
  - OCULAR HYPERAEMIA [None]
  - ODYNOPHAGIA [None]
  - OEDEMA MOUTH [None]
  - OEDEMA PERIPHERAL [None]
  - ORAL DISORDER [None]
  - PAIN IN JAW [None]
  - SWELLING FACE [None]
  - VISUAL ACUITY REDUCED [None]
  - WEIGHT INCREASED [None]
